FAERS Safety Report 6546034-2 (Version None)
Quarter: 2010Q1

REPORT INFORMATION
  Report Type: 
  Country: None (occurrence: None)
  Receive Date: 20100121
  Receipt Date: 20100121
  Transmission Date: 20100710
  Serious: Yes (Other)
  Sender: FDA-Public Use
  Company Number: None

PATIENT
  Age: 56 Year
  Sex: Female
  Weight: 52.1637 kg

DRUGS (1)
  1. BONIVA [Suspect]
     Indication: OSTEOPENIA
     Dosage: TOOK ONLY ONCE PO
     Route: 048
     Dates: start: 20080608, end: 20080608

REACTIONS (6)
  - ARTHRALGIA [None]
  - BONE PAIN [None]
  - INSOMNIA [None]
  - LETHARGY [None]
  - MUSCULOSKELETAL PAIN [None]
  - PAIN [None]
